FAERS Safety Report 6082438-2 (Version None)
Quarter: 2009Q1

REPORT INFORMATION
  Report Type: 
  Country: None (occurrence: None)
  Receive Date: 20090218
  Receipt Date: 20090205
  Transmission Date: 20090719
  Serious: Yes (Other)
  Sender: FDA-Public Use
  Company Number: US-ROCHE-595736

PATIENT
  Sex: Male
  Weight: 90.7 kg

DRUGS (4)
  1. ACCUTANE [Suspect]
     Indication: ACNE
     Dosage: PRESCRIPTION FILLED FOR ACCUTANE 20MG CAPSULE ON 24-AUG-01 AND 29 SEP-2001
     Route: 048
     Dates: start: 20010824, end: 20010913
  2. ACCUTANE [Suspect]
     Route: 048
     Dates: start: 20010914, end: 20011011
  3. ACCUTANE [Suspect]
     Route: 048
     Dates: start: 20011012, end: 20011101
  4. AQUAPHOR [Concomitant]
     Dates: start: 20010801

REACTIONS (5)
  - COLITIS [None]
  - CROHN'S DISEASE [None]
  - DEPRESSION [None]
  - INFLAMMATORY BOWEL DISEASE [None]
  - INTESTINAL STENOSIS [None]
